FAERS Safety Report 7283636-2 (Version None)
Quarter: 2011Q1

REPORT INFORMATION
  Report Type: 
  Country: None (occurrence: None)
  Receive Date: 20110209
  Receipt Date: 20110131
  Transmission Date: 20110831
  Serious: Yes (Hospitalization)
  Sender: FDA-Public Use
  Company Number: B0698607A

PATIENT
  Age: 69 Year
  Sex: Female

DRUGS (4)
  1. MELPHALAN [Suspect]
     Route: 048
     Dates: start: 20101213, end: 20110106
  2. VELCADE [Suspect]
     Route: 042
     Dates: start: 20101213, end: 20110104
  3. DACORTIN [Concomitant]
     Dosage: 60MG PER DAY
     Route: 048
     Dates: start: 20101213
  4. SEPTRIN [Concomitant]
     Route: 048
     Dates: start: 20101213

REACTIONS (1)
  - TOXIC SKIN ERUPTION [None]
